FAERS Safety Report 5780693-7 (Version None)
Quarter: 2008Q2

REPORT INFORMATION
  Report Type: 
  Country: None (occurrence: None)
  Receive Date: 20080620
  Receipt Date: 20080616
  Transmission Date: 20081010
  Serious: Yes (Hospitalization)
  Sender: FDA-Public Use
  Company Number: US-BOEHRINGER INGELHEIM GMBH, GERMANY-2008-BP-08364BP

PATIENT
  Age: 84 Year
  Sex: Male

DRUGS (1)
  1. FLOMAX [Suspect]
     Indication: BENIGN PROSTATIC HYPERPLASIA
     Route: 048
     Dates: start: 19970101, end: 20080430

REACTIONS (6)
  - CATARACT [None]
  - CATARACT OPERATION COMPLICATION [None]
  - CONDITION AGGRAVATED [None]
  - MIOSIS [None]
  - RETINAL DISORDER [None]
  - VITREOUS LOSS [None]
